FAERS Safety Report 5005353-1 (Version None)
Quarter: 2006Q2

REPORT INFORMATION
  Report Type: 
  Country: None (occurrence: None)
  Receive Date: 20060518
  Receipt Date: 20051005
  Transmission Date: 20061013
  Serious: Yes (Other)
  Sender: FDA-Public Use
  Company Number: US-MERCK-0510USA05902

PATIENT
  Age: 74 Year
  Sex: Male
  Weight: 72 kg

DRUGS (5)
  1. VIOXX [Suspect]
     Indication: SPINAL DISORDER
     Route: 048
  2. VIOXX [Suspect]
     Indication: MUSCULOSKELETAL DISCOMFORT
     Route: 048
  3. NORVASC [Concomitant]
     Route: 065
  4. COZAAR [Concomitant]
     Route: 065
  5. GLUCOTROL XL [Concomitant]
     Route: 065

REACTIONS (1)
  - CEREBROVASCULAR ACCIDENT [None]
